FAERS Safety Report 7618576-X (Version None)
Quarter: 2011Q3

REPORT INFORMATION
  Report Type: 
  Country: None (occurrence: None)
  Receive Date: 20110718
  Receipt Date: 20110711
  Transmission Date: 20111222
  Serious: Yes (Other)
  Sender: FDA-Public Use
  Company Number: AU-PFIZER INC-2011155119

PATIENT
  Age: 75 Year

DRUGS (1)
  1. XALATAN [Suspect]

REACTIONS (2)
  - HYPERTENSION [None]
  - ASTHMA [None]
